FAERS Safety Report 4861551-9 (Version None)
Quarter: 2005Q4

REPORT INFORMATION
  Report Type: 
  Country: None (occurrence: None)
  Receive Date: 20051129
  Receipt Date: 20041022
  Transmission Date: 20060501
  Serious: Yes (Other)
  Sender: FDA-Public Use
  Company Number: WAES 0409USA02229

PATIENT
  Age: 51 Year
  Sex: Female
  Weight: 71.6683 kg

DRUGS (7)
  1. FOSAMAX [Suspect]
     Dosage: 70 MG / WKLY / PO
     Route: 048
     Dates: start: 20040730, end: 20040816
  2. FOSAMAX [Suspect]
     Dosage: 70 MG / WKLY / PO
     Route: 048
     Dates: start: 20040901, end: 20040916
  3. CLIMARA [Concomitant]
  4. PEPCID [Concomitant]
  5. THERAPY UNSPECIFIED [Concomitant]
  6. CALCIUM GLUCONATE [Concomitant]
  7. VITAMINS [Concomitant]

REACTIONS (1)
  - HEADACHE [None]
